FAERS Safety Report 4568274-4 (Version None)
Quarter: 2005Q1

REPORT INFORMATION
  Report Type: 
  Country: None (occurrence: None)
  Receive Date: 20050131
  Receipt Date: 20050121
  Transmission Date: 20050727
  Serious: Yes (Disabling)
  Sender: FDA-Public Use
  Company Number: 200410639BYL

PATIENT
  Age: 72 Year
  Sex: Male
  Weight: 57 kg

DRUGS (6)
  1. BAYASPIRIN (ACETYSALICYLIC ACID) [Suspect]
     Indication: ANGINA PECTORIS
     Dosage: 100 MG, QD, ORAL
     Route: 048
     Dates: end: 20041231
  2. NITRODERM [Concomitant]
  3. CERNILTON [Concomitant]
  4. CALTAN [Concomitant]
  5. PRODRONER [Concomitant]
  6. ACTOS [Concomitant]

REACTIONS (3)
  - CONDITION AGGRAVATED [None]
  - DEAFNESS [None]
  - DIALYSIS [None]
